FAERS Safety Report 20552483 (Version 1)
Quarter: 2022Q1

REPORT INFORMATION
  Report Type: Spontaneous
  Country: US (occurrence: US)
  Receive Date: 20220304
  Receipt Date: 20220304
  Transmission Date: 20220423
  Serious: No
  Sender: FDA-Public Use
  Company Number: US-PFIZER INC-202200206728

PATIENT
  Age: 70 Year
  Sex: Female
  Weight: 47.63 kg

DRUGS (1)
  1. ALPRAZOLAM [Suspect]
     Active Substance: ALPRAZOLAM
     Indication: Anxiety
     Dosage: 1 MG, 4X/DAY

REACTIONS (2)
  - Insomnia [Unknown]
  - Intentional product misuse [Unknown]
